FAERS Safety Report 10570940 (Version 1)
Quarter: 2014Q4

REPORT INFORMATION
  Report Type: Spontaneous
  Country: BR (occurrence: BR)
  Receive Date: 20141107
  Receipt Date: 20141107
  Transmission Date: 20150529
  Serious: Yes (Other)
  Sender: FDA-Public Use
  Company Number: BR-BAUSCH-BL-2014-007875

PATIENT
  Age: 79 Year
  Sex: Female
  Weight: 75 kg

DRUGS (1)
  1. TIMOPTOL [Suspect]
     Active Substance: TIMOLOL
     Indication: GLAUCOMA
     Route: 047
     Dates: start: 2009, end: 2014

REACTIONS (5)
  - Eye irritation [Unknown]
  - Cataract [Unknown]
  - Eye allergy [Unknown]
  - Blindness unilateral [Not Recovered/Not Resolved]
  - Eyelid oedema [Unknown]
